FAERS Safety Report 7302215-1 (Version None)
Quarter: 2011Q1

REPORT INFORMATION
  Report Type: 
  Country: None (occurrence: None)
  Receive Date: 20110218
  Receipt Date: 20110210
  Transmission Date: 20110831
  Serious: Yes (Hospitalization)
  Sender: FDA-Public Use
  Company Number: PHHO2011DE02688

PATIENT
  Sex: Male
  Weight: 79.5 kg

DRUGS (3)
  1. EVEROLIMUS [Suspect]
     Indication: HEART TRANSPLANT
     Dosage: 0.75 MG, BID
     Route: 048
     Dates: start: 20090203, end: 20110125
  2. PREDNISOLONE [Suspect]
     Indication: HEART TRANSPLANT
     Dosage: 5 MG, QD
     Route: 048
     Dates: start: 20090203
  3. NEORAL [Concomitant]
     Indication: HEART TRANSPLANT
     Dosage: 100 MG, BID
     Route: 048
     Dates: start: 20090203, end: 20110125

REACTIONS (4)
  - POSTOPERATIVE THORACIC PROCEDURE COMPLICATION [None]
  - ABDOMINAL HERNIA REPAIR [None]
  - STERNAL WIRING [None]
  - ABDOMINAL HERNIA [None]
